FAERS Safety Report 21705557 (Version 2)
Quarter: 2024Q2

REPORT INFORMATION
  Report Type: Report from Study
  Country: US (occurrence: US)
  Receive Date: 20221209
  Receipt Date: 20240603
  Transmission Date: 20240716
  Serious: Yes (Hospitalization, Other)
  Sender: FDA-Public Use
  Company Number: US-002147023-NVSC2022US282331

PATIENT
  Sex: Female

DRUGS (1)
  1. ILARIS [Suspect]
     Active Substance: CANAKINUMAB
     Indication: Still^s disease
     Dosage: UNK UNK, QMO
     Route: 065
     Dates: start: 20190301

REACTIONS (9)
  - Ear infection [Recovering/Resolving]
  - Bronchitis [Recovering/Resolving]
  - Brain oedema [Unknown]
  - Feeling abnormal [Unknown]
  - Thrombosis [Unknown]
  - Pyrexia [Not Recovered/Not Resolved]
  - Malaise [Not Recovered/Not Resolved]
  - Hepatic enzyme abnormal [Unknown]
  - Wrong technique in product usage process [Unknown]
